FAERS Safety Report 5781110-3 (Version None)
Quarter: 2008Q2

REPORT INFORMATION
  Report Type: 
  Country: None (occurrence: None)
  Receive Date: 20080620
  Receipt Date: 20080609
  Transmission Date: 20081010
  Serious: Yes (Other)
  Sender: FDA-Public Use
  Company Number: US-PFIZER INC-2008050452

PATIENT
  Sex: Male
  Weight: 77.1 kg

DRUGS (3)
  1. XANAX [Suspect]
  2. CHANTIX [Suspect]
     Indication: SMOKING CESSATION THERAPY
     Dates: start: 20080526, end: 20080604
  3. LISINOPRIL [Concomitant]

REACTIONS (2)
  - DEPRESSION [None]
  - TINNITUS [None]
